FAERS Safety Report 7789631-9 (Version None)
Quarter: 2011Q3

REPORT INFORMATION
  Report Type: 
  Country: None (occurrence: None)
  Receive Date: 20110930
  Receipt Date: 20110922
  Transmission Date: 20111222
  Serious: Yes (Hospitalization)
  Sender: FDA-Public Use
  Company Number: JP-MERCK-1108USA01626

PATIENT
  Age: 80 Year
  Sex: Male
  Weight: 77 kg

DRUGS (13)
  1. MEXITIL [Concomitant]
     Route: 048
  2. NYOSHIN-SAN [Concomitant]
     Route: 048
     Dates: start: 20110712
  3. DEXTROMETHORPHAN HYDROBROMIDE [Concomitant]
     Route: 048
  4. ASTHPHYLLIN [Concomitant]
     Route: 048
  5. MUCODYNE [Concomitant]
     Route: 048
  6. STROMECTOL [Suspect]
     Indication: ACARODERMATITIS
     Route: 048
     Dates: start: 20110722, end: 20110722
  7. FLIVAS [Concomitant]
     Route: 048
  8. CYMBALTA [Concomitant]
     Route: 048
     Dates: start: 20110719
  9. AMLODIPINE BESYLATE [Concomitant]
     Route: 048
  10. LEXOTAN [Concomitant]
     Route: 048
  11. ATARAX [Concomitant]
     Route: 048
  12. STROMECTOL [Suspect]
     Route: 048
     Dates: start: 20110727, end: 20110727
  13. CLONAZEPAM [Concomitant]
     Route: 048

REACTIONS (2)
  - RHABDOMYOLYSIS [None]
  - ACARODERMATITIS [None]
